FAERS Safety Report 25300773 (Version 1)
Quarter: 2025Q2

REPORT INFORMATION
  Report Type: Spontaneous
  Country: AU (occurrence: AU)
  Receive Date: 20250512
  Receipt Date: 20250512
  Transmission Date: 20250716
  Serious: Yes (Hospitalization)
  Sender: NOVARTIS
  Company Number: AU-002147023-NVSC2025AU075041

PATIENT
  Sex: Female

DRUGS (1)
  1. LEQVIO [Suspect]
     Active Substance: INCLISIRAN SODIUM
     Indication: Hypercholesterolaemia
     Route: 065

REACTIONS (3)
  - Syncope [Unknown]
  - Trifascicular block [Unknown]
  - Atrioventricular block [Unknown]
